FAERS Safety Report 22366769 (Version 1)
Quarter: 2023Q2

REPORT INFORMATION
  Report Type: Spontaneous
  Country: US (occurrence: None)
  Receive Date: 20230524
  Receipt Date: 20230524
  Transmission Date: 20230721
  Serious: Yes (Other)
  Sender: FDA-Public Use
  Company Number: None

PATIENT
  Age: 68 Year
  Sex: Female
  Weight: 80.55 kg

DRUGS (8)
  1. LIOTHYRONINE SODIUM [Suspect]
     Active Substance: LIOTHYRONINE SODIUM
     Indication: Tri-iodothyronine free decreased
     Dosage: OTHER QUANTITY : 0.5 TABLET(S);?FREQUENCY : DAILY;?
     Route: 048
     Dates: start: 20230429, end: 20230507
  2. TIROSINT [Concomitant]
     Active Substance: LEVOTHYROXINE SODIUM
  3. PROPRANOLOL [Concomitant]
     Active Substance: PROPRANOLOL HYDROCHLORIDE
  4. LOSARTAN POTASSIUM [Concomitant]
  5. E2/E3 [Concomitant]
  6. PROGESTERONE [Concomitant]
     Active Substance: PROGESTERONE
  7. TESTOSTERONE [Concomitant]
     Active Substance: TESTOSTERONE
  8. MAGNESIUM BUFFERED CHELATE [Concomitant]

REACTIONS (8)
  - Feeling hot [None]
  - Dizziness [None]
  - Vertigo [None]
  - Vomiting [None]
  - Head discomfort [None]
  - Motion sickness [None]
  - Impaired driving ability [None]
  - Illness [None]

NARRATIVE: CASE EVENT DATE: 20230506
